FAERS Safety Report 25417981 (Version 3)
Quarter: 2025Q2

REPORT INFORMATION
  Report Type: Spontaneous
  Country: PK (occurrence: PK)
  Receive Date: 20250610
  Receipt Date: 20250620
  Transmission Date: 20250717
  Serious: Yes (Death, Life-Threatening, Other)
  Sender: PFIZER
  Company Number: PK-PFIZER INC-PV202500068838

PATIENT
  Age: 74 Year
  Sex: Male

DRUGS (2)
  1. METHYLPREDNISOLONE SODIUM SUCCINATE [Suspect]
     Active Substance: METHYLPREDNISOLONE SODIUM SUCCINATE
     Indication: Giant cell arteritis
     Route: 042
  2. METHYLPREDNISOLONE SODIUM SUCCINATE [Suspect]
     Active Substance: METHYLPREDNISOLONE SODIUM SUCCINATE
     Route: 042

REACTIONS (8)
  - Vertebrobasilar stroke [Fatal]
  - Blindness [Fatal]
  - Encephalopathy [Fatal]
  - Vertigo [Fatal]
  - Euglycaemic diabetic ketoacidosis [Fatal]
  - Urosepsis [Fatal]
  - Off label use [Unknown]
  - Drug effective for unapproved indication [Unknown]
